FAERS Safety Report 19313037 (Version 1)
Quarter: 2021Q2

REPORT INFORMATION
  Report Type: Spontaneous
  Country: US (occurrence: US)
  Receive Date: 20210526
  Receipt Date: 20210526
  Transmission Date: 20210717
  Serious: Yes (Other)
  Sender: FDA-Public Use
  Company Number: None

PATIENT
  Age: 53 Year
  Sex: Male
  Weight: 87.75 kg

DRUGS (7)
  1. NAPROXEN. [Concomitant]
     Active Substance: NAPROXEN
  2. TESTOSTERONE TOPICAL SOLUTION 30 MG PER ACTUATION [Suspect]
     Active Substance: TESTOSTERONE
     Indication: BLOOD TESTOSTERONE DECREASED
     Dosage: ?          QUANTITY:4 PUMPS;?
     Route: 061
     Dates: start: 20210401, end: 20210525
  3. VITAMIN C [Concomitant]
     Active Substance: ASCORBIC ACID
  4. VIT D [Concomitant]
     Active Substance: VITAMIN D NOS
  5. SYNTHROID [Concomitant]
     Active Substance: LEVOTHYROXINE SODIUM
  6. CYTOMEL [Concomitant]
     Active Substance: LIOTHYRONINE SODIUM
  7. MSIR TESTOSTERONE [Concomitant]

REACTIONS (4)
  - Incorrect dose administered [None]
  - Product container seal issue [None]
  - Product design issue [None]
  - Blood testosterone decreased [None]

NARRATIVE: CASE EVENT DATE: 20210514
